FAERS Safety Report 18516264 (Version 1)
Quarter: 2020Q4

REPORT INFORMATION
  Report Type: Spontaneous
  Country: SE (occurrence: SE)
  Receive Date: 20201118
  Receipt Date: 20201118
  Transmission Date: 20210114
  Serious: Yes (Life-Threatening, Disabling)
  Sender: FDA-Public Use
  Company Number: SE-ACCORD-208402

PATIENT
  Age: 23 Year
  Sex: Female

DRUGS (2)
  1. SERTRALINE [Suspect]
     Active Substance: SERTRALINE HYDROCHLORIDE
     Indication: DEPRESSION
     Dates: start: 20200110, end: 20200808
  2. IMOVANE [Concomitant]
     Active Substance: ZOPICLONE
     Dosage: 5 MG
     Dates: start: 20200105, end: 20200601

REACTIONS (4)
  - Aggression [Unknown]
  - Nausea [Unknown]
  - Mental disorder [Unknown]
  - Anger [Unknown]

NARRATIVE: CASE EVENT DATE: 20200110
